FAERS Safety Report 5825893-2 (Version None)
Quarter: 2008Q3

REPORT INFORMATION
  Report Type: 
  Country: None (occurrence: None)
  Receive Date: 20080729
  Receipt Date: 20080521
  Transmission Date: 20090109
  Serious: No
  Sender: FDA-Public Use
  Company Number: US-BAUSCH-2008BL002264

PATIENT
  Age: 59 Year
  Sex: Female

DRUGS (1)
  1. ERYTHROCIN 1% [Suspect]
     Indication: CORNEAL ABRASION
     Route: 047
     Dates: start: 20080518, end: 20080521

REACTIONS (1)
  - SKIN DISCOLOURATION [None]
